FAERS Safety Report 11972190 (Version 18)
Quarter: 2017Q1

REPORT INFORMATION
  Report Type: Report from Study
  Country: CA (occurrence: CA)
  Receive Date: 20160128
  Receipt Date: 20170208
  Transmission Date: 20170428
  Serious: Yes (Hospitalization, Other)
  Sender: FDA-Public Use
  Company Number: PHHY2015CA073373

PATIENT
  Age: 74 Year
  Sex: Female

DRUGS (6)
  1. SANDOSTATIN LAR DEPOT [Suspect]
     Active Substance: OCTREOTIDE ACETATE
     Indication: VOMITING
     Dosage: 10 MG, QMO
     Route: 030
     Dates: start: 20150519, end: 20160613
  2. SANDOSTATIN LAR DEPOT [Suspect]
     Active Substance: OCTREOTIDE ACETATE
     Dosage: 20 MG, QMO
     Route: 030
     Dates: start: 20160711, end: 20161004
  3. SANDOSTATIN LAR DEPOT [Suspect]
     Active Substance: OCTREOTIDE ACETATE
     Dosage: 30 MG, QMO
     Route: 030
     Dates: start: 20161031
  4. METAMUCIL [Concomitant]
     Active Substance: PLANTAGO SEED
     Indication: PRODUCT USED FOR UNKNOWN INDICATION
     Dosage: 100 ML, PRN
     Route: 048
  5. SANDOSTATIN [Suspect]
     Active Substance: OCTREOTIDE ACETATE
     Indication: VOMITING
     Dosage: 50 UG, BID CONTINUED FOR 2 WEEKS POST SANDOSTATIN LAR
     Route: 058
     Dates: start: 201504, end: 201506
  6. OXAZEPAM. [Concomitant]
     Active Substance: OXAZEPAM
     Indication: PRODUCT USED FOR UNKNOWN INDICATION
     Dosage: 15 MG, (HALF TABLET)
     Route: 065

REACTIONS (29)
  - Hypoaesthesia [Not Recovered/Not Resolved]
  - Flatulence [Unknown]
  - Blood pressure systolic increased [Unknown]
  - Dyspnoea [Unknown]
  - Neoplasm progression [Unknown]
  - Asthenia [Unknown]
  - Inguinal hernia [Recovering/Resolving]
  - Blood pressure increased [Unknown]
  - Fall [Unknown]
  - Vomiting [Recovering/Resolving]
  - Dizziness postural [Unknown]
  - Amnesia [Unknown]
  - Vision blurred [Unknown]
  - Body temperature decreased [Unknown]
  - Abdominal pain lower [Unknown]
  - Decreased appetite [Unknown]
  - Fatigue [Unknown]
  - Product use issue [Unknown]
  - Heart rate decreased [Unknown]
  - Dyspepsia [Unknown]
  - Confusional state [Unknown]
  - General physical health deterioration [Unknown]
  - Diarrhoea [Recovered/Resolved]
  - Abdominal distension [Unknown]
  - Pruritus [Unknown]
  - Encephalitis [Recovered/Resolved]
  - Blood pressure diastolic decreased [Unknown]
  - Musculoskeletal pain [Unknown]
  - Abdominal pain upper [Unknown]

NARRATIVE: CASE EVENT DATE: 2015
